FAERS Safety Report 7621376-8 (Version None)
Quarter: 2011Q3

REPORT INFORMATION
  Report Type: 
  Country: None (occurrence: None)
  Receive Date: 20110719
  Receipt Date: 20110712
  Transmission Date: 20111222
  Serious: Yes (Hospitalization, Other)
  Sender: FDA-Public Use
  Company Number: DE-PFIZER INC-2011156756

PATIENT
  Sex: Female

DRUGS (2)
  1. ZOLOFT [Suspect]
     Indication: PANIC DISORDER
     Dosage: 25 MG, UNK
  2. ZOLOFT [Suspect]
     Dosage: 12.5 MG, UNK

REACTIONS (2)
  - DRUG INTOLERANCE [None]
  - BLOOD PRESSURE INCREASED [None]
